FAERS Safety Report 4751501-8 (Version None)
Quarter: 2005Q3

REPORT INFORMATION
  Report Type: 
  Country: None (occurrence: None)
  Receive Date: 20050822
  Receipt Date: 20050808
  Transmission Date: 20060218
  Serious: Yes (Other)
  Sender: FDA-Public Use
  Company Number: 2005BI014888

PATIENT
  Age: 57 Year
  Sex: Female
  Weight: 48.5349 kg

DRUGS (6)
  1. AVONEX [Suspect]
     Indication: MULTIPLE SCLEROSIS
     Dosage: 30 UG; QW; IM
     Route: 030
     Dates: start: 20000101, end: 20050201
  2. AVONEX [Suspect]
     Indication: MULTIPLE SCLEROSIS
     Dosage: 30 UG; QW; IM
     Route: 030
     Dates: start: 20050201, end: 20050101
  3. AVONEX [Suspect]
     Indication: MULTIPLE SCLEROSIS
     Dosage: 30 UG; QW; IM
     Route: 030
     Dates: start: 20050101
  4. OXYCONTIN [Concomitant]
  5. METHADONE HCL [Concomitant]
  6. VICODIN [Concomitant]

REACTIONS (5)
  - BALANCE DISORDER [None]
  - DRY MOUTH [None]
  - DYSPHAGIA [None]
  - INFLUENZA LIKE ILLNESS [None]
  - VISUAL DISTURBANCE [None]
